FAERS Safety Report 7689155-3 (Version None)
Quarter: 2011Q3

REPORT INFORMATION
  Report Type: 
  Country: None (occurrence: None)
  Receive Date: 20110817
  Receipt Date: 20110815
  Transmission Date: 20111222
  Serious: Yes (Other)
  Sender: FDA-Public Use
  Company Number: US-PFIZER INC-2011161067

PATIENT
  Sex: Female

DRUGS (2)
  1. DILANTIN [Suspect]
     Indication: CONVULSION
     Dosage: UNK
     Route: 048
     Dates: start: 19750101, end: 20110501
  2. MYSOLINE [Concomitant]
     Dosage: UNK

REACTIONS (3)
  - OSTEOPOROSIS [None]
  - NEUROPATHY PERIPHERAL [None]
  - ARTHRITIS [None]
